FAERS Safety Report 9829269 (Version 1)
Quarter: 2014Q1

REPORT INFORMATION
  Report Type: Spontaneous
  Country: US (occurrence: US)
  Receive Date: 20140120
  Receipt Date: 20140120
  Transmission Date: 20141002
  Serious: Yes (Death)
  Sender: FDA-Public Use
  Company Number: US-ROCHE-1334283

PATIENT
  Age: 69 Year
  Sex: Male

DRUGS (11)
  1. ZELBORAF [Suspect]
     Indication: MALIGNANT MELANOMA
     Route: 048
     Dates: start: 20131121, end: 20131226
  2. NITROFURANTOIN MONO/MAC [Concomitant]
     Route: 065
     Dates: start: 20131204
  3. MORPHINE SULFATE [Concomitant]
     Route: 065
     Dates: start: 20131120
  4. MORPHINE SULFATE [Concomitant]
     Route: 065
     Dates: start: 20131111
  5. OXYCODONE/ACETAMINOPHEN [Concomitant]
     Route: 065
     Dates: start: 20131120
  6. OXYCODONE/ACETAMINOPHEN [Concomitant]
     Route: 065
     Dates: start: 20131111
  7. AMOXI-CLAVULAN [Concomitant]
     Route: 065
     Dates: start: 20131111
  8. ACIDOPHILUS [Concomitant]
     Route: 065
     Dates: start: 20131111
  9. METOCLOPRAMIDE [Concomitant]
     Route: 065
     Dates: start: 20131108
  10. ASPIRIN [Concomitant]
     Route: 065
  11. CALCIUM D3 [Concomitant]
     Route: 065

REACTIONS (2)
  - Disease progression [Fatal]
  - Drug ineffective [Unknown]
